FAERS Safety Report 8013404-5 (Version None)
Quarter: 2011Q4

REPORT INFORMATION
  Report Type: 
  Country: None (occurrence: None)
  Receive Date: 20111229
  Receipt Date: 20111222
  Transmission Date: 20120403
  Serious: Yes (Other)
  Sender: FDA-Public Use
  Company Number: DE-TEVA-307741GER

PATIENT
  Sex: Male
  Weight: 85 kg

DRUGS (1)
  1. COPAXONE [Suspect]
     Dates: start: 20110601

REACTIONS (1)
  - INJECTION SITE NECROSIS [None]
